FAERS Safety Report 5742038-8 (Version None)
Quarter: 2008Q2

REPORT INFORMATION
  Report Type: 
  Country: None (occurrence: None)
  Receive Date: 20080519
  Receipt Date: 20080512
  Transmission Date: 20081010
  Serious: Yes (Hospitalization)
  Sender: FDA-Public Use
  Company Number: GB-MERCK-0805GBR00059

PATIENT
  Age: 44 Year
  Sex: Male
  Weight: 127 kg

DRUGS (4)
  1. ZOCOR [Suspect]
     Indication: PROPHYLAXIS
     Route: 048
     Dates: start: 20051201, end: 20071201
  2. GLICLAZIDE [Concomitant]
     Route: 048
  3. METFORMIN [Concomitant]
     Indication: DIABETES MELLITUS
     Route: 048
     Dates: start: 20050501, end: 20071201
  4. ROSIGLITAZONE MALEATE [Concomitant]
     Route: 048
     Dates: start: 20050501, end: 20071201

REACTIONS (2)
  - AGGRESSION [None]
  - DEPRESSION [None]
